FAERS Safety Report 16619225 (Version 1)
Quarter: 2019Q3

REPORT INFORMATION
  Report Type: Report from Study
  Country: MX (occurrence: MX)
  Receive Date: 20190723
  Receipt Date: 20190723
  Transmission Date: 20191004
  Serious: Yes (Other)
  Sender: FDA-Public Use
  Company Number: PHHY2019MX160365

PATIENT
  Sex: Male
  Weight: 75 kg

DRUGS (1)
  1. EXFORGE [Suspect]
     Active Substance: AMLODIPINE BESYLATE\VALSARTAN
     Indication: HYPERTENSION
     Dosage: 0.5 DF, QD  (AMLODIPINE 5 MG, VALSARTAN 160 MG)
     Route: 048
     Dates: start: 2017

REACTIONS (6)
  - Diabetes mellitus [Unknown]
  - Product prescribing error [Unknown]
  - Wrong technique in product usage process [Unknown]
  - Blindness [Unknown]
  - Neoplasm malignant [Unknown]
  - Weight decreased [Unknown]

NARRATIVE: CASE EVENT DATE: 2017
